FAERS Safety Report 5313243-X (Version None)
Quarter: 2007Q2

REPORT INFORMATION
  Report Type: 
  Country: None (occurrence: None)
  Receive Date: 20070501
  Receipt Date: 20070424
  Transmission Date: 20071010
  Serious: Yes (Hospitalization)
  Sender: FDA-Public Use
  Company Number: AU-JNJFOC-20070404843

PATIENT
  Age: 25 Year
  Sex: Female
  Weight: 42 kg

DRUGS (5)
  1. DURAGESIC-100 [Suspect]
     Indication: BACK PAIN
     Route: 062
  2. OXYCODONE HCL [Concomitant]
     Route: 065
  3. EPILIUM [Concomitant]
     Indication: EPILEPSY
     Route: 065
  4. LAMOTRIGINE [Concomitant]
     Indication: EPILEPSY
     Route: 065
  5. LEXAPRO [Concomitant]
     Indication: ANXIETY
     Route: 065

REACTIONS (1)
  - CYANOSIS [None]
